FAERS Safety Report 12702970 (Version 1)
Quarter: 2016Q3

REPORT INFORMATION
  Report Type: Spontaneous
  Country: IT (occurrence: IT)
  Receive Date: 20160831
  Receipt Date: 20160831
  Transmission Date: 20161109
  Serious: Yes (Other)
  Sender: FDA-Public Use
  Company Number: PHHY2016IT115755

PATIENT
  Age: 86 Year
  Sex: Female

DRUGS (4)
  1. TRITTICO [Suspect]
     Active Substance: TRAZODONE HYDROCHLORIDE
     Indication: ABNORMAL BEHAVIOUR
     Dosage: 36 DRP, QD
     Route: 048
     Dates: start: 20160101, end: 20160707
  2. TALOFEN [Suspect]
     Active Substance: PROMAZINE HYDROCHLORIDE
     Indication: ABNORMAL BEHAVIOUR
     Dosage: 7 DRP, QD
     Route: 048
     Dates: start: 20160101, end: 20160707
  3. QUETIAPINE. [Suspect]
     Active Substance: QUETIAPINE
     Indication: ABNORMAL BEHAVIOUR
     Dosage: 2 DF, QD
     Route: 048
     Dates: start: 20160101, end: 20160707
  4. TRIATEC [Concomitant]
     Active Substance: RAMIPRIL
     Indication: PRODUCT USED FOR UNKNOWN INDICATION
     Route: 048

REACTIONS (4)
  - Speech disorder [Unknown]
  - Agitation [Unknown]
  - Dysstasia [Unknown]
  - Somnolence [Unknown]

NARRATIVE: CASE EVENT DATE: 20160707
